FAERS Safety Report 18192226 (Version 1)
Quarter: 2020Q3

REPORT INFORMATION
  Report Type: Spontaneous
  Country: US (occurrence: US)
  Receive Date: 20200825
  Receipt Date: 20200825
  Transmission Date: 20201103
  Serious: No
  Sender: FDA-Public Use
  Company Number: US-PFIZER INC-2020326307

PATIENT
  Age: 58 Year
  Sex: Female
  Weight: 88.89 kg

DRUGS (1)
  1. GABAPENTIN. [Suspect]
     Active Substance: GABAPENTIN
     Dosage: UNK

REACTIONS (2)
  - Treatment failure [Unknown]
  - Somnolence [Unknown]

NARRATIVE: CASE EVENT DATE: 20200727
